FAERS Safety Report 16291707 (Version 2)
Quarter: 2019Q3

REPORT INFORMATION
  Report Type: Report from Study
  Country: US (occurrence: US)
  Receive Date: 20190509
  Receipt Date: 20190719
  Transmission Date: 20191004
  Serious: Yes (Other)
  Sender: FDA-Public Use
  Company Number: US-TEVA-2019-US-1046405

PATIENT
  Age: 59 Year
  Sex: Female

DRUGS (9)
  1. SYNTHROID [Concomitant]
     Active Substance: LEVOTHYROXINE SODIUM
  2. LORATADINE. [Concomitant]
     Active Substance: LORATADINE
  3. COGENTIN [Concomitant]
     Active Substance: BENZTROPINE MESYLATE
  4. HALDOL [Concomitant]
     Active Substance: HALOPERIDOL
  5. PHENOBARBITAL. [Concomitant]
     Active Substance: PHENOBARBITAL
  6. CLOZAPINE TEVA [Suspect]
     Active Substance: CLOZAPINE
     Route: 048
  7. DEPAKOTE [Concomitant]
     Active Substance: DIVALPROEX SODIUM
  8. CALCIUM [Concomitant]
     Active Substance: CALCIUM
  9. METOPROLOL. [Concomitant]
     Active Substance: METOPROLOL

REACTIONS (2)
  - Neutropenia [Recovered/Resolved]
  - Granulocytopenia [Unknown]

NARRATIVE: CASE EVENT DATE: 20190614
